FAERS Safety Report 5315115-3 (Version None)
Quarter: 2007Q2

REPORT INFORMATION
  Report Type: 
  Country: None (occurrence: None)
  Receive Date: 20070502
  Receipt Date: 20070420
  Transmission Date: 20071010
  Serious: Yes (Other)
  Sender: FDA-Public Use
  Company Number: GB-PFIZER INC-2006070715

PATIENT
  Sex: Male
  Weight: 70 kg

DRUGS (1)
  1. LATANOPROST [Suspect]
     Indication: INTRAOCULAR PRESSURE INCREASED
     Route: 047
     Dates: start: 20050210, end: 20050704

REACTIONS (5)
  - ANXIETY [None]
  - DISCOMFORT [None]
  - EXTRASYSTOLES [None]
  - FEAR [None]
  - LETHARGY [None]
